FAERS Safety Report 20873565 (Version 1)
Quarter: 2022Q2

REPORT INFORMATION
  Report Type: Spontaneous
  Country: US (occurrence: US)
  Receive Date: 20220525
  Receipt Date: 20220525
  Transmission Date: 20220720
  Serious: No
  Sender: FDA-Public Use
  Company Number: US-BIOVITRUM-2022US06745

PATIENT
  Sex: Female
  Weight: 6 kg

DRUGS (13)
  1. SYNAGIS [Suspect]
     Active Substance: PALIVIZUMAB
     Indication: Premature baby
     Route: 030
     Dates: start: 20211230
  2. GERBER GENTLE PROBIOTIC VIT-D [Concomitant]
     Dates: start: 20220502
  3. VITAMIN D3 [Concomitant]
     Active Substance: CHOLECALCIFEROL
     Dosage: 100(400)/ML DROPS
  4. FAMOTIDINE [Concomitant]
     Active Substance: FAMOTIDINE
     Dosage: 40 MG/5ML SUSP RECON
  5. SODIUM CHLORIDE [Concomitant]
     Active Substance: SODIUM CHLORIDE
     Dosage: DROPS
  6. ALDACTONE [Concomitant]
     Active Substance: SPIRONOLACTONE
  7. FUROSEMIDE [Concomitant]
     Active Substance: FUROSEMIDE
     Dosage: 10 MG/ML SOLUTION
  8. SILDENAFIL [Concomitant]
     Active Substance: SILDENAFIL
  9. EPINEPHRINE [Concomitant]
     Active Substance: EPINEPHRINE
  10. SYNAGIS [Suspect]
     Active Substance: PALIVIZUMAB
     Indication: Pulmonary hypertension
  11. SYNAGIS [Suspect]
     Active Substance: PALIVIZUMAB
     Indication: Ebstein^s anomaly
  12. LEVALBUTEROL CONCENTRATE [Concomitant]
  13. SYNAGIS [Suspect]
     Active Substance: PALIVIZUMAB
     Indication: Low birth weight baby

REACTIONS (1)
  - Constipation [Unknown]
